FAERS Safety Report 5867470-3 (Version None)
Quarter: 2008Q3

REPORT INFORMATION
  Report Type: 
  Country: None (occurrence: None)
  Receive Date: 20080902
  Receipt Date: 20080821
  Transmission Date: 20090109
  Serious: Yes (Death)
  Sender: FDA-Public Use
  Company Number: GB-TYCO HEALTHCARE/MALLINCKRODT-T200801386

PATIENT

DRUGS (3)
  1. METHADOSE [Suspect]
     Indication: DRUG DEPENDENCE
  2. MORPHINE [Suspect]
     Indication: DRUG DEPENDENCE
  3. HEROIN [Suspect]
     Indication: DRUG DEPENDENCE

REACTIONS (1)
  - DEATH [None]
